FAERS Safety Report 6335576-0 (Version None)
Quarter: 2009Q3

REPORT INFORMATION
  Report Type: 
  Country: None (occurrence: None)
  Receive Date: 20090831
  Receipt Date: 20090821
  Transmission Date: 20100115
  Serious: Yes (Hospitalization)
  Sender: FDA-Public Use
  Company Number: US-ASTRAZENECA-2009SE09340

PATIENT
  Age: 28538 Day

DRUGS (2)
  1. CRESTOR [Suspect]
     Route: 048
     Dates: start: 20080401
  2. NEXIUM [Suspect]
     Route: 048
     Dates: start: 20040401

REACTIONS (3)
  - ARTHRALGIA [None]
  - CARDIAC OPERATION [None]
  - SLEEP DISORDER [None]
